FAERS Safety Report 25199037 (Version 2)
Quarter: 2025Q3

REPORT INFORMATION
  Report Type: Report from Study
  Country: US (occurrence: US)
  Receive Date: 20250415
  Receipt Date: 20250810
  Transmission Date: 20251021
  Serious: Yes (Other)
  Sender: ALEXION PHARMACEUTICALS
  Company Number: US-AstraZeneca-CH-00845013A

PATIENT
  Sex: Female

DRUGS (1)
  1. OLAPARIB [Suspect]
     Active Substance: OLAPARIB
     Dosage: 100 MILLIGRAM, QD

REACTIONS (6)
  - Renal impairment [Unknown]
  - Dizziness [Unknown]
  - Abdominal pain upper [Unknown]
  - Flatulence [Unknown]
  - Hypertension [Unknown]
  - Weight decreased [Unknown]
